FAERS Safety Report 7871001-6 (Version None)
Quarter: 2011Q4

REPORT INFORMATION
  Report Type: 
  Country: None (occurrence: None)
  Receive Date: 20111029
  Receipt Date: 20110222
  Transmission Date: 20120403
  Serious: No
  Sender: FDA-Public Use
  Company Number: US-AMGEN-USASP2011010238

PATIENT
  Age: 63 Year
  Sex: Female

DRUGS (3)
  1. ENBREL [Suspect]
     Indication: PSORIATIC ARTHROPATHY
     Dosage: 50 MG, QWK
     Dates: start: 20040301, end: 20101201
  2. HUMIRA [Concomitant]
     Dosage: UNK
     Dates: start: 20101201
  3. ENBREL [Suspect]
     Indication: PSORIASIS

REACTIONS (2)
  - THERAPEUTIC RESPONSE DECREASED [None]
  - PSORIASIS [None]
